FAERS Safety Report 8270425-5 (Version None)
Quarter: 2012Q2

REPORT INFORMATION
  Report Type: 
  Country: None (occurrence: None)
  Receive Date: 20120410
  Receipt Date: 20120328
  Transmission Date: 20120825
  Serious: Yes (Other)
  Sender: FDA-Public Use
  Company Number: PHHY2011JP25098

PATIENT
  Sex: Female
  Weight: 58 kg

DRUGS (12)
  1. KREMEZIN [Concomitant]
     Dosage: 6 G
     Dates: start: 20110408
  2. IRBESARTAN [Concomitant]
     Dosage: 300 MG
  3. KAYEXALATE [Concomitant]
     Dosage: 15 G
     Route: 048
     Dates: start: 20050826
  4. ACETAMINOPHEN [Concomitant]
     Dosage: 600 MG
     Route: 048
     Dates: start: 20050826
  5. ALISKIREN [Suspect]
     Indication: HYPERTENSION
     Dosage: 150 MG, DAILY
     Route: 048
     Dates: start: 20100514, end: 20110202
  6. AMLODIPINE [Concomitant]
     Indication: HYPERTENSION
     Dosage: 10 MG,
     Dates: start: 20080119
  7. IRBESARTAN [Concomitant]
     Indication: HYPERTENSION
     Dosage: 200 MG
     Dates: start: 20091201
  8. ALISKIREN [Suspect]
     Dosage: 300 MG, DAILY
     Route: 048
     Dates: start: 20110203, end: 20110213
  9. DEPAS [Concomitant]
     Dosage: 1.5 MG
     Route: 048
     Dates: start: 20050826
  10. ALLOPURINOL [Concomitant]
     Dosage: 100 MG
     Route: 048
     Dates: start: 20050826
  11. GASTROM [Concomitant]
     Dosage: 3 MG
     Route: 048
     Dates: start: 20050826
  12. EPADEL [Concomitant]
     Dosage: 1800 MG
     Route: 048
     Dates: start: 20050826

REACTIONS (5)
  - ANGIOEDEMA [None]
  - RENAL FAILURE [None]
  - BLOOD PRESSURE INCREASED [None]
  - NEPHROGENIC ANAEMIA [None]
  - ANAEMIA [None]
